FAERS Safety Report 4904013-2 (Version None)
Quarter: 2006Q1

REPORT INFORMATION
  Report Type: 
  Country: None (occurrence: None)
  Receive Date: 20060208
  Receipt Date: 20030923
  Transmission Date: 20060701
  Serious: No
  Sender: FDA-Public Use
  Company Number: US-GLAXOSMITHKLINE-A0428594A

PATIENT
  Sex: Female

DRUGS (1)
  1. PAXIL [Suspect]
     Indication: ANXIETY
     Route: 048
     Dates: start: 19930910, end: 20020425

REACTIONS (1)
  - DRUG WITHDRAWAL SYNDROME [None]
